FAERS Safety Report 10457548 (Version 2)
Quarter: 2014Q3

REPORT INFORMATION
  Report Type: Spontaneous
  Country: FI (occurrence: FI)
  Receive Date: 20140916
  Receipt Date: 20140916
  Transmission Date: 20150326
  Serious: Yes (Other)
  Sender: FDA-Public Use
  Company Number: PHHY2014FI103923

PATIENT
  Age: 58 Year
  Sex: Female

DRUGS (5)
  1. TASIGNA [Suspect]
     Active Substance: NILOTINIB
     Indication: CHRONIC MYELOID LEUKAEMIA
     Dosage: 400 MG, BID (2X200 MG TWICE DAILY)
     Route: 048
     Dates: start: 201401
  2. TASIGNA [Suspect]
     Active Substance: NILOTINIB
     Dosage: 600 MG, (2X200MG + 1X200MG)
  3. TASIGNA [Suspect]
     Active Substance: NILOTINIB
     Dosage: 600 MG, (400 MG+200 MG)
  4. TASIGNA [Suspect]
     Active Substance: NILOTINIB
     Dosage: 400 MG, DAILY
  5. SURMONTIL                               /UNK/ [Concomitant]
     Dosage: 12.5 MG, QD

REACTIONS (4)
  - Blood bilirubin increased [Not Recovered/Not Resolved]
  - Aspartate aminotransferase increased [Unknown]
  - Gamma-glutamyltransferase increased [Unknown]
  - Alanine aminotransferase increased [Unknown]

NARRATIVE: CASE EVENT DATE: 20140528
